FAERS Safety Report 7267790 (Version 5)
Quarter: 2015Q3

REPORT INFORMATION
  Report Type: Spontaneous
  Country: US (occurrence: US)
  Receive Date: 20100201
  Receipt Date: 20150805
  Transmission Date: 20151125
  Serious: Yes (Other)
  Sender: FDA-Public Use
  Company Number: US-GILEAD-2010-0026751

PATIENT
  Sex: Female

DRUGS (10)
  1. MAVIK [Concomitant]
     Active Substance: TRANDOLAPRIL
  2. IRON [Concomitant]
     Active Substance: IRON
  3. MIRALAX [Concomitant]
     Active Substance: POLYETHYLENE GLYCOL 3350
  4. PRILOSEC [Concomitant]
     Active Substance: OMEPRAZOLE MAGNESIUM
  5. POTASSIUM [Concomitant]
     Active Substance: POTASSIUM
  6. LETAIRIS [Suspect]
     Active Substance: AMBRISENTAN
     Indication: PULMONARY ARTERIAL HYPERTENSION
  7. XANAX [Concomitant]
     Active Substance: ALPRAZOLAM
  8. CRESTOR [Concomitant]
     Active Substance: ROSUVASTATIN CALCIUM
  9. LASIX [Concomitant]
     Active Substance: FUROSEMIDE
  10. CALCIUM + VITAMIN D [Concomitant]
     Active Substance: CALCIUM\VITAMIN D

REACTIONS (1)
  - Liver function test abnormal [Recovered/Resolved]
